FAERS Safety Report 8778733 (Version 2)
Quarter: 2013Q2

REPORT INFORMATION
  Report Type: Spontaneous
  Country: US (occurrence: US)
  Receive Date: 20120913
  Receipt Date: 20130401
  Transmission Date: 20140414
  Serious: Yes (Other)
  Sender: FDA-Public Use
  Company Number: US-ROCHE-1080659

PATIENT
  Sex: Female
  Weight: 32.69 kg

DRUGS (4)
  1. ACCUTANE [Suspect]
     Indication: ACNE
     Route: 065
     Dates: start: 199805, end: 19980709
  2. ACCUTANE [Suspect]
     Route: 065
     Dates: start: 19980727, end: 199902
  3. ORTHO TRI CYCLEN [Concomitant]
     Indication: ORAL CONTRACEPTION
  4. LOESTRIN [Concomitant]
     Indication: ORAL CONTRACEPTION

REACTIONS (7)
  - Crohn^s disease [Unknown]
  - Inflammatory bowel disease [Unknown]
  - Tachycardia [Unknown]
  - Depression [Unknown]
  - Large intestine polyp [Unknown]
  - Irritable bowel syndrome [Unknown]
  - Blood triglycerides increased [Unknown]
